FAERS Safety Report 10219270 (Version 1)
Quarter: 2014Q2

REPORT INFORMATION
  Report Type: Spontaneous
  Country: US (occurrence: None)
  Receive Date: 20140604
  Receipt Date: 20140604
  Transmission Date: 20141212
  Serious: Yes (Hospitalization)
  Sender: FDA-Public Use
  Company Number: None

PATIENT
  Age: 57 Year
  Sex: Male

DRUGS (3)
  1. PEGASYS 180MCG/0.5ML PFS 4 X 0.5 ML KIT [Suspect]
     Indication: PRODUCT USED FOR UNKNOWN INDICATION
     Dosage: UNKNOWN 180 MCG ONCE A WEEK
  2. SOVALDI [Concomitant]
  3. RIBAPAK [Concomitant]

REACTIONS (2)
  - Diarrhoea [None]
  - Nausea [None]
